FAERS Safety Report 22246955 (Version 1)
Quarter: 2023Q2

REPORT INFORMATION
  Report Type: Spontaneous
  Country: US (occurrence: US)
  Receive Date: 20230424
  Receipt Date: 20230424
  Transmission Date: 20230722
  Serious: Yes (Other)
  Sender: FDA-Public Use
  Company Number: US-TEVA-2023-US-2879158

PATIENT
  Age: 58 Year
  Sex: Female

DRUGS (2)
  1. QVAR REDIHALER [Suspect]
     Active Substance: BECLOMETHASONE DIPROPIONATE
     Indication: Product used for unknown indication
     Dosage: INHALATION - AEROSOL, STRENGTH: 80 MCG
     Route: 065
  2. QVAR REDIHALER [Suspect]
     Active Substance: BECLOMETHASONE DIPROPIONATE
     Dosage: INHALATION - AEROSOL, STRENGTH: 80 MCG
     Route: 065

REACTIONS (4)
  - Oxygen saturation decreased [Unknown]
  - Device failure [Unknown]
  - Device malfunction [Unknown]
  - Expired product administered [Unknown]

NARRATIVE: CASE EVENT DATE: 20230101
